FAERS Safety Report 14923920 (Version 3)
Quarter: 2018Q3

REPORT INFORMATION
  Report Type: Spontaneous
  Country: US (occurrence: US)
  Receive Date: 20180522
  Receipt Date: 20180702
  Transmission Date: 20181010
  Serious: Yes (Hospitalization)
  Sender: FDA-Public Use
  Company Number: US-PFIZER INC-2018205347

PATIENT
  Age: 65 Year
  Sex: Male
  Weight: 83 kg

DRUGS (6)
  1. AMARYL [Concomitant]
     Active Substance: GLIMEPIRIDE
     Dosage: UNK
  2. LANREOTIDE [Concomitant]
     Active Substance: LANREOTIDE
     Dosage: UNK
  3. OXYCODONE [Concomitant]
     Active Substance: OXYCODONE
     Dosage: UNK, AS NEEDED
  4. SUTENT [Suspect]
     Active Substance: SUNITINIB MALATE
     Indication: PANCREATIC NEUROENDOCRINE TUMOUR
     Dosage: 37.5 MG, DAILY
     Dates: start: 20180425, end: 201805
  5. AMLODIPINE [Concomitant]
     Active Substance: AMLODIPINE BESYLATE
     Dosage: UNK
  6. CREON [Concomitant]
     Active Substance: PANCRELIPASE AMYLASE\PANCRELIPASE LIPASE\PANCRELIPASE PROTEASE
     Dosage: UNK

REACTIONS (10)
  - Vomiting [Unknown]
  - Blood glucose decreased [Unknown]
  - Abdominal pain [Recovering/Resolving]
  - Feeding disorder [Unknown]
  - Platelet count decreased [Unknown]
  - Condition aggravated [Recovering/Resolving]
  - Frequent bowel movements [Unknown]
  - Fatigue [Unknown]
  - Constipation [Unknown]
  - Nausea [Unknown]

NARRATIVE: CASE EVENT DATE: 2018
